FAERS Safety Report 16159118 (Version 2)
Quarter: 2019Q2

REPORT INFORMATION
  Report Type: Spontaneous
  Country: BR (occurrence: BR)
  Receive Date: 20190404
  Receipt Date: 20190525
  Transmission Date: 20190711
  Serious: Yes (Life-Threatening, Disabling, Other)
  Sender: FDA-Public Use
  Company Number: PHHY2019BR076832

PATIENT
  Sex: Female
  Weight: 50 kg

DRUGS (2)
  1. FORASEQ [Suspect]
     Active Substance: BUDESONIDE\FORMOTEROL FUMARATE
     Indication: ASTHMA
     Dosage: 2 DF, QD
     Route: 065
  2. FORASEQ [Suspect]
     Active Substance: BUDESONIDE\FORMOTEROL FUMARATE
     Indication: NASOPHARYNGITIS

REACTIONS (8)
  - Drug dependence [Unknown]
  - Spinal fracture [Unknown]
  - Movement disorder [Unknown]
  - Feeling of despair [Unknown]
  - Incorrect dose administered [Unknown]
  - Malaise [Unknown]
  - General physical health deterioration [Unknown]
  - Asthmatic crisis [Unknown]
